FAERS Safety Report 9342884 (Version 1)
Quarter: 2013Q2

REPORT INFORMATION
  Report Type: Spontaneous
  Country: FR (occurrence: FR)
  Receive Date: 20130611
  Receipt Date: 20130611
  Transmission Date: 20140414
  Serious: Yes (Hospitalization)
  Sender: FDA-Public Use
  Company Number: FR-GLAXOSMITHKLINE-B0897106A

PATIENT
  Age: 66 Year
  Sex: Male

DRUGS (13)
  1. ZOCOR [Concomitant]
     Route: 065
  2. OMACOR [Concomitant]
     Route: 065
  3. LERCAN [Concomitant]
     Route: 065
  4. LANZOR [Concomitant]
     Route: 065
  5. CONTRAMAL [Concomitant]
     Route: 065
  6. DOLIPRANE [Concomitant]
     Route: 065
  7. ZOPHREN [Suspect]
     Indication: PREMEDICATION
     Dosage: 8MG SINGLE DOSE
     Route: 048
     Dates: start: 20130416
  8. EMEND [Suspect]
     Indication: PREMEDICATION
     Dosage: 125MG SINGLE DOSE
     Route: 048
     Dates: start: 20130416
  9. GEMCITABINE [Suspect]
     Indication: CHEMOTHERAPY
     Route: 042
     Dates: start: 20130416
  10. SOLUMEDROL [Suspect]
     Indication: PREMEDICATION
     Dosage: 80MG SINGLE DOSE
     Route: 042
     Dates: start: 20130416
  11. POLARAMINE [Suspect]
     Indication: PREMEDICATION
     Dosage: 5MG SINGLE DOSE
     Route: 040
     Dates: start: 20130416
  12. ACTISKENAN [Concomitant]
     Indication: PREMEDICATION
     Dosage: 10MG PER DAY
     Dates: start: 20130416
  13. ZESTORETIC [Concomitant]
     Route: 065

REACTIONS (1)
  - Epistaxis [Recovered/Resolved]
